FAERS Safety Report 4412856-7 (Version None)
Quarter: 2004Q3

REPORT INFORMATION
  Report Type: 
  Country: None (occurrence: None)
  Receive Date: 20040727
  Receipt Date: 20040715
  Transmission Date: 20050211
  Serious: Yes (Life-Threatening, Hospitalization)
  Sender: FDA-Public Use
  Company Number: 207892

PATIENT
  Age: 47 Year
  Sex: Female
  Weight: 94.6 kg

DRUGS (6)
  1. RITUXAN [Suspect]
     Indication: NON-HODGKIN'S LYMPHOMA
     Dosage: 743 MG, INTRAVENOUS
     Route: 042
  2. CYTOXAN [Suspect]
     Indication: NON-HODGKIN'S LYMPHOMA
     Dosage: 1485 MG, Q2W, INTRAVENOUS
     Route: 042
  3. DOXORUBICIN HCL [Suspect]
     Indication: NON-HODGKIN'S LYMPHOMA
     Dosage: 99 MG, Q2W, INTRAVENOUS
     Route: 042
  4. VINCRISTINE [Suspect]
     Indication: NON-HODGKIN'S LYMPHOMA
     Dosage: 1.92 MG, Q2W, INTRAVENOUS
     Route: 042
  5. NEULASTA [Concomitant]
  6. PREDNISOLONE [Concomitant]

REACTIONS (9)
  - BACTERIAL INFECTION [None]
  - BLOOD PRESSURE SYSTOLIC DECREASED [None]
  - CHILLS [None]
  - CULTURE WOUND POSITIVE [None]
  - HYPERVENTILATION [None]
  - HYPOTHERMIA [None]
  - NEUTROPENIA [None]
  - PLATELET COUNT INCREASED [None]
  - PYREXIA [None]
